FAERS Safety Report 11314066 (Version 2)
Quarter: 2015Q3

REPORT INFORMATION
  Report Type: Spontaneous
  Country: CH (occurrence: CH)
  Receive Date: 20150727
  Receipt Date: 20150731
  Transmission Date: 20151125
  Serious: Yes (Death, Hospitalization, Other)
  Sender: FDA-Public Use
  Company Number: CH-REGENERON PHARMACEUTICALS, INC.-2014-20095

PATIENT
  Sex: Female

DRUGS (1)
  1. EYLEA [Suspect]
     Active Substance: AFLIBERCEPT
     Indication: AGE-RELATED MACULAR DEGENERATION
     Dosage: TOTAL OF 1 INJECTION OF EYLEA
     Route: 031
     Dates: start: 20140709, end: 20140709

REACTIONS (4)
  - Cerebrovascular accident [Fatal]
  - Cardiac arrest [Fatal]
  - Pathological fracture [Unknown]
  - Septic shock [Fatal]

NARRATIVE: CASE EVENT DATE: 20140728
